FAERS Safety Report 5730431-9 (Version None)
Quarter: 2008Q2

REPORT INFORMATION
  Report Type: 
  Country: None (occurrence: None)
  Receive Date: 20080507
  Receipt Date: 20080428
  Transmission Date: 20081010
  Serious: Yes (Other)
  Sender: FDA-Public Use
  Company Number: GB-JNJFOC-20080205585

PATIENT
  Sex: Female
  Weight: 45 kg

DRUGS (8)
  1. REMICADE [Suspect]
     Indication: RHEUMATOID ARTHRITIS
     Route: 042
  2. OMEPRAZOLE [Concomitant]
  3. METHOTREXATE [Concomitant]
  4. PREDNISOLONE [Concomitant]
  5. ALONDRONATE [Concomitant]
  6. DICLOFENAC [Concomitant]
  7. DIHYDROCODEINE [Concomitant]
  8. FOLIC ACID [Concomitant]

REACTIONS (2)
  - SEPSIS [None]
  - SYNOVIAL CYST [None]
